FAERS Safety Report 9551261 (Version 2)
Quarter: 2013Q4

REPORT INFORMATION
  Report Type: Spontaneous
  Country: US (occurrence: US)
  Receive Date: 20130925
  Receipt Date: 20131010
  Transmission Date: 20140711
  Serious: No
  Sender: FDA-Public Use
  Company Number: US-009507513-1309USA011690

PATIENT
  Sex: Female

DRUGS (1)
  1. TIMOLOL MALEATE [Suspect]
     Dosage: UNK
     Route: 047

REACTIONS (4)
  - Joint swelling [Unknown]
  - Local swelling [Unknown]
  - Nightmare [Unknown]
  - Dizziness [Unknown]
